FAERS Safety Report 19608369 (Version 1)
Quarter: 2021Q3

REPORT INFORMATION
  Report Type: Spontaneous
  Country: US (occurrence: US)
  Receive Date: 20210721
  Receipt Date: 20210721
  Transmission Date: 20211014
  Serious: No
  Sender: FDA-Public Use
  Company Number: None

PATIENT

DRUGS (1)
  1. POLYVALENT ANTI?SNAKE VENOM (ASV) [Suspect]
     Active Substance: IMMUNE GLOBULIN ANTIVENIN NOS

REACTIONS (2)
  - Wrong technique in product usage process [None]
  - Accidental underdose [None]
